FAERS Safety Report 5129482-7 (Version None)
Quarter: 2006Q4

REPORT INFORMATION
  Report Type: 
  Country: None (occurrence: None)
  Receive Date: 20061012
  Receipt Date: 20061003
  Transmission Date: 20070319
  Serious: Yes (Hospitalization, Other)
  Sender: FDA-Public Use
  Company Number: 2006111825

PATIENT
  Age: 30 Year
  Sex: Female

DRUGS (7)
  1. ZOLOFT [Suspect]
  2. LAMICTAL [Suspect]
     Indication: BIPOLAR DISORDER
     Dosage: 25 MG (25 MG, 1 IN 1 D), ORAL
     Route: 048
     Dates: start: 20060629, end: 20060701
  3. LAMICTAL [Suspect]
     Indication: STEVENS-JOHNSON SYNDROME
     Dosage: 25 MG (25 MG, 1 IN 1 D), ORAL
     Route: 048
     Dates: start: 20060629, end: 20060701
  4. ABILIFY [Suspect]
     Indication: DRUG USE FOR UNKNOWN INDICATION
     Dosage: (30 MG)
  5. XANAX [Concomitant]
  6. LITHOBID [Concomitant]
  7. AMBIEN [Concomitant]

REACTIONS (6)
  - ANAPHYLACTIC REACTION [None]
  - RESPIRATORY DISTRESS [None]
  - SKIN ULCER [None]
  - STEVENS-JOHNSON SYNDROME [None]
  - STOMATITIS [None]
  - SWELLING [None]
